FAERS Safety Report 13571045 (Version 1)
Quarter: 2017Q2

REPORT INFORMATION
  Report Type: Spontaneous
  Country: US (occurrence: US)
  Receive Date: 20170523
  Receipt Date: 20170523
  Transmission Date: 20170830
  Serious: Yes (Disabling)
  Sender: FDA-Public Use
  Company Number: US-ZYDUS-011755

PATIENT
  Age: 36 Year
  Sex: Female

DRUGS (5)
  1. AMFETAMINE ASPARTATE/AMFETAMINE SULFATE/DEXAMFETAMINE SACCHARATE/DEXAMFETAMINE SULFATE [Concomitant]
     Indication: ATTENTION DEFICIT/HYPERACTIVITY DISORDER
     Dosage: 30 MG TWICE A DAY AS NEEDED
     Route: 048
     Dates: start: 201601
  2. DULOXETINE. [Concomitant]
     Active Substance: DULOXETINE
     Indication: ANXIETY
     Dosage: 60 MG ONCE A DAY
     Route: 048
     Dates: start: 201601
  3. TOPIRAMATE. [Suspect]
     Active Substance: TOPIRAMATE
     Indication: SCIATICA
     Dosage: TWO 25 MG TABLETS, EVERY NIGHT
     Route: 048
     Dates: start: 20160705, end: 20160719
  4. VITAMIN D [Concomitant]
     Active Substance: CHOLECALCIFEROL
     Indication: VITAMIN D DEFICIENCY
     Dosage: ONCE A WEEK
     Dates: start: 2012
  5. BUPROPION. [Concomitant]
     Active Substance: BUPROPION
     Indication: ANXIETY
     Dosage: 300 MG ONCE A DAY
     Route: 048
     Dates: start: 2014

REACTIONS (2)
  - Vision blurred [Not Recovered/Not Resolved]
  - Visual impairment [Not Recovered/Not Resolved]

NARRATIVE: CASE EVENT DATE: 20160718
